FAERS Safety Report 10815435 (Version 1)
Quarter: 2015Q1

REPORT INFORMATION
  Report Type: Report from Study
  Country: US (occurrence: US)
  Receive Date: 20150218
  Receipt Date: 20150218
  Transmission Date: 20150721
  Serious: No
  Sender: FDA-Public Use
  Company Number: US-ABBVIE-14K-163-1285398-00

PATIENT
  Age: 56 Year
  Sex: Female

DRUGS (5)
  1. HUMIRA [Suspect]
     Active Substance: ADALIMUMAB
     Dates: start: 20140830, end: 20140830
  2. HUMIRA [Suspect]
     Active Substance: ADALIMUMAB
     Indication: PSORIASIS
     Dates: start: 20140823, end: 20140823
  3. HUMIRA [Suspect]
     Active Substance: ADALIMUMAB
     Dates: start: 20140912
  4. HYDROXYZINE [Concomitant]
     Active Substance: HYDROXYZINE\HYDROXYZINE HYDROCHLORIDE
     Indication: PSORIASIS
     Dates: start: 201408
  5. ULOBETASOL PROPIONATE [Concomitant]
     Indication: PSORIASIS
     Dosage: DAILY

REACTIONS (4)
  - Injection site pain [Recovered/Resolved]
  - Injection site erythema [Recovered/Resolved]
  - Injection site pain [Recovered/Resolved]
  - Inappropriate schedule of drug administration [Unknown]

NARRATIVE: CASE EVENT DATE: 20140823
